FAERS Safety Report 6590342-6 (Version None)
Quarter: 2010Q1

REPORT INFORMATION
  Report Type: 
  Country: None (occurrence: None)
  Receive Date: 20100219
  Receipt Date: 20100209
  Transmission Date: 20100710
  Serious: Yes (Hospitalization)
  Sender: FDA-Public Use
  Company Number: FR-KINGPHARMUSA00001-K201000148

PATIENT
  Age: 82 Year
  Sex: Female

DRUGS (10)
  1. ALTACE [Suspect]
     Indication: HYPERTENSION
     Dosage: 2.5 MG, QD
     Route: 048
     Dates: start: 20091113
  2. CARVEDILOL [Suspect]
     Indication: HYPERTENSION
     Dosage: 25 MG, QD
     Route: 048
     Dates: start: 20000101
  3. TORSEMIDE [Suspect]
     Indication: HYPERTENSION
     Dosage: 10 MG, QD
     Route: 048
     Dates: start: 20091113
  4. PENTAERITHRITYL TETRANITRATE [Suspect]
     Indication: HYPERTENSIVE HEART DISEASE
     Dosage: 50 MG, QD
     Route: 048
     Dates: start: 20090101
  5. GLYCERYL TRINITRATE [Suspect]
     Indication: MALIGNANT HYPERTENSIVE HEART DISEASE
     Dosage: 1.5 DF, QD
     Route: 048
     Dates: start: 20091113
  6. PANTOZOL [Concomitant]
     Dosage: 40 MG, UNK
     Dates: start: 20090101
  7. ZOLPIDEM [Concomitant]
     Dosage: 5 MG, UNK
     Dates: start: 20071001
  8. ACETYLSALICYLIC ACID [Concomitant]
     Dosage: 100 MG, UNK
     Dates: start: 20090101
  9. ARLEVERT [Concomitant]
     Dosage: UNK
     Dates: start: 20071001
  10. TRAMAL [Concomitant]
     Dosage: 50 MG, UNK
     Dates: start: 20081001

REACTIONS (5)
  - DIZZINESS [None]
  - DYSPNOEA [None]
  - HYPOTENSION [None]
  - SYNCOPE [None]
  - TACHYCARDIA [None]
